FAERS Safety Report 12626400 (Version 1)
Quarter: 2016Q3

REPORT INFORMATION
  Report Type: Report from Study
  Country: CA (occurrence: CA)
  Receive Date: 20160805
  Receipt Date: 20160805
  Transmission Date: 20161109
  Serious: Yes (Death, Hospitalization)
  Sender: FDA-Public Use
  Company Number: CA-B.I. PHARMACEUTICALS,INC./RIDGEFIELD-2016-BI-26554CN

PATIENT
  Age: 70 Year
  Sex: Male
  Weight: 51.5 kg

DRUGS (3)
  1. ASPIRIN. [Concomitant]
     Active Substance: ASPIRIN
     Indication: CORONARY ARTERY BYPASS
     Route: 065
     Dates: start: 2001, end: 20160731
  2. OFEV [Suspect]
     Active Substance: NINTEDANIB
     Dosage: 300 MG
     Route: 048
     Dates: end: 20160725
  3. OFEV [Suspect]
     Active Substance: NINTEDANIB
     Indication: IDIOPATHIC PULMONARY FIBROSIS
     Dosage: 300 MG
     Route: 048
     Dates: start: 20151006, end: 20160718

REACTIONS (12)
  - Ascites [Unknown]
  - Pleural effusion [Unknown]
  - Arteriosclerosis [Unknown]
  - Lumbar vertebral fracture [Unknown]
  - Weight increased [Unknown]
  - Abdominal pain [Unknown]
  - Lymphadenopathy [Unknown]
  - Oedema peripheral [Unknown]
  - Generalised oedema [Unknown]
  - Duodenal ulcer perforation [Fatal]
  - Bladder dilatation [Unknown]
  - Spleen disorder [Unknown]

NARRATIVE: CASE EVENT DATE: 20160720
